FAERS Safety Report 15810793 (Version 3)
Quarter: 2019Q1

REPORT INFORMATION
  Report Type: Report from Study
  Country: None (occurrence: RO)
  Receive Date: 20190111
  Receipt Date: 20190308
  Transmission Date: 20190417
  Serious: Yes (Hospitalization, Other)
  Sender: FDA-Public Use
  Company Number: RO-ABBVIE-18S-135-2583987-00

PATIENT
  Age: 67 Year
  Sex: Male

DRUGS (8)
  1. VIEKIRAX [Suspect]
     Active Substance: OMBITASVIR\PARITAPREVIR\RITONAVIR
     Indication: HEPATIC CIRRHOSIS
  2. PREDUCTAL [Concomitant]
     Active Substance: TRIMETAZIDINE DIHYDROCHLORIDE
     Indication: CARDIAC DISORDER
     Route: 048
  3. EXVIERA [Suspect]
     Active Substance: DASABUVIR
     Indication: HEPATIC CIRRHOSIS
  4. VIEKIRAX [Suspect]
     Active Substance: OMBITASVIR\PARITAPREVIR\RITONAVIR
     Indication: HEPATITIS C
     Route: 048
     Dates: start: 20180213, end: 20180507
  5. DIUREX [Concomitant]
     Indication: CARDIAC DISORDER
     Route: 048
     Dates: start: 20180310
  6. SARGENOR [Concomitant]
     Active Substance: ARGININE ASPARTATE
     Indication: PRODUCT USED FOR UNKNOWN INDICATION
     Dosage: 2-3 AMPULE
     Route: 048
  7. ASPENTER [Concomitant]
     Active Substance: ASPIRIN
     Indication: CARDIAC DISORDER
     Route: 048
  8. EXVIERA [Suspect]
     Active Substance: DASABUVIR
     Indication: HEPATITIS C
     Route: 048
     Dates: start: 20180213, end: 20180507

REACTIONS (6)
  - Prostatic specific antigen increased [Not Recovered/Not Resolved]
  - Adenocarcinoma [Not Recovered/Not Resolved]
  - Pain in extremity [Not Recovered/Not Resolved]
  - Pollakiuria [Recovering/Resolving]
  - Dizziness [Not Recovered/Not Resolved]
  - Hypoaesthesia [Not Recovered/Not Resolved]

NARRATIVE: CASE EVENT DATE: 201803
